FAERS Safety Report 9847712 (Version 2)
Quarter: 2014Q1

REPORT INFORMATION
  Report Type: Spontaneous
  Country: DE (occurrence: DE)
  Receive Date: 20140128
  Receipt Date: 20140228
  Transmission Date: 20141002
  Serious: Yes (Hospitalization)
  Sender: FDA-Public Use
  Company Number: DE-BIOGENIDEC-2014BI007927

PATIENT
  Age: 49 Year
  Sex: Male

DRUGS (2)
  1. TYSABRI [Suspect]
     Indication: MULTIPLE SCLEROSIS
     Route: 042
     Dates: start: 2013
  2. BACLOFEN [Concomitant]
     Indication: MULTIPLE SCLEROSIS
     Dates: end: 20130113

REACTIONS (3)
  - Pulmonary embolism [Unknown]
  - Cor pulmonale acute [Unknown]
  - Deep vein thrombosis [Unknown]
